FAERS Safety Report 4902686-1 (Version None)
Quarter: 2006Q1

REPORT INFORMATION
  Report Type: 
  Country: None (occurrence: None)
  Receive Date: 20060207
  Receipt Date: 20060126
  Transmission Date: 20060701
  Serious: Yes (Disabling)
  Sender: FDA-Public Use
  Company Number: DK-ROCHE-433824

PATIENT
  Sex: Male
  Weight: 83.5 kg

DRUGS (1)
  1. XENICAL [Suspect]
     Dosage: SECOND INDICATION: OBESITY.
     Route: 048
     Dates: start: 20010908, end: 20051231

REACTIONS (5)
  - BLOOD ALKALINE PHOSPHATASE INCREASED [None]
  - BLOOD PARATHYROID HORMONE [None]
  - FATIGUE [None]
  - MYALGIA [None]
  - UNEVALUABLE EVENT [None]
